FAERS Safety Report 7628125-8 (Version None)
Quarter: 2011Q3

REPORT INFORMATION
  Report Type: 
  Country: None (occurrence: None)
  Receive Date: 20110722
  Receipt Date: 20110711
  Transmission Date: 20111222
  Serious: Yes (Other)
  Sender: FDA-Public Use
  Company Number: DE-TEVA-290520GER

PATIENT
  Age: 10 Year
  Sex: Female

DRUGS (8)
  1. IMMUNE GLOBULIN (HUMAN) [Concomitant]
     Indication: POLYCHONDRITIS
  2. ETANERCEPT [Concomitant]
     Indication: POLYCHONDRITIS
  3. INFLIXIMAB [Concomitant]
     Indication: POLYCHONDRITIS
  4. PREDNISONE [Suspect]
     Indication: POLYCHONDRITIS
     Dosage: 1 MG/KG;
  5. PREDNISONE [Suspect]
     Dosage: 10 MILLIGRAM;
  6. METHOTREXATE [Concomitant]
     Indication: POLYCHONDRITIS
  7. ANAKRINA [Concomitant]
     Indication: POLYCHONDRITIS
  8. METHYLPREDNISOLONE [Suspect]
     Indication: POLYCHONDRITIS
     Dosage: 1 GRAM;
     Route: 042

REACTIONS (2)
  - CUSHING'S SYNDROME [None]
  - EPIDURAL LIPOMATOSIS [None]
